FAERS Safety Report 6355983-X (Version None)
Quarter: 2009Q3

REPORT INFORMATION
  Report Type: 
  Country: None (occurrence: None)
  Receive Date: 20090914
  Receipt Date: 20090914
  Transmission Date: 20100115
  Serious: No
  Sender: FDA-Public Use
  Company Number: None

PATIENT
  Age: 69 Year
  Sex: Female
  Weight: 80.7403 kg

DRUGS (3)
  1. PRISTIQ [Suspect]
     Indication: ANXIETY
     Dosage: I DAILY PO
     Route: 048
     Dates: start: 20090815, end: 20090815
  2. PRISTIQ [Suspect]
     Indication: DEPRESSION
     Dosage: I DAILY PO
     Route: 048
     Dates: start: 20090815, end: 20090815
  3. LEXAPRO [Suspect]

REACTIONS (1)
  - DYSKINESIA [None]
